FAERS Safety Report 5422730-5 (Version None)
Quarter: 2007Q3

REPORT INFORMATION
  Report Type: 
  Country: None (occurrence: None)
  Receive Date: 20070822
  Receipt Date: 20070821
  Transmission Date: 20080115
  Serious: Yes (Death)
  Sender: FDA-Public Use
  Company Number: BR-BOEHRINGER INGELHEIM PHARMACEUTICALS, INC.-2007-BP-19517BR

PATIENT
  Age: 82 Year
  Sex: Male

DRUGS (9)
  1. SPIRIVA [Suspect]
     Indication: EMPHYSEMA
     Route: 055
     Dates: start: 20070201, end: 20070704
  2. FORADIL [Concomitant]
     Indication: EMPHYSEMA
  3. CARVEDILOL [Concomitant]
  4. SOMALGIN [Concomitant]
  5. ALDACTONE [Concomitant]
     Indication: LUNG DISORDER
  6. PANTOPRAZOL [Concomitant]
     Indication: GASTRIC DISORDER
  7. LASIX [Concomitant]
     Indication: LUNG DISORDER
  8. LASILACTONA [Concomitant]
     Indication: LUNG DISORDER
  9. LASILACTONA [Concomitant]
     Indication: HYPERTENSION

REACTIONS (2)
  - ACUTE RESPIRATORY FAILURE [None]
  - CHRONIC OBSTRUCTIVE PULMONARY DISEASE [None]
